FAERS Safety Report 6663721-6 (Version None)
Quarter: 2010Q2

REPORT INFORMATION
  Report Type: 
  Country: None (occurrence: None)
  Receive Date: 20100401
  Receipt Date: 20100323
  Transmission Date: 20101027
  Serious: Yes (Other)
  Sender: FDA-Public Use
  Company Number: US-JNJCH-2010007581

PATIENT
  Age: 38 Year
  Sex: Male

DRUGS (1)
  1. LISTERINE [Suspect]
     Indication: ALCOHOL USE
     Dosage: TEXT:WHOLE BOTTLE
     Route: 048

REACTIONS (3)
  - ABDOMINAL DISCOMFORT [None]
  - DIARRHOEA [None]
  - INTENTIONAL DRUG MISUSE [None]
